FAERS Safety Report 6460722-8 (Version None)
Quarter: 2009Q4

REPORT INFORMATION
  Report Type: 
  Country: None (occurrence: None)
  Receive Date: 20091125
  Receipt Date: 20091125
  Transmission Date: 20100525
  Serious: Yes (Hospitalization)
  Sender: FDA-Public Use
  Company Number: None

PATIENT
  Sex: Male
  Weight: 127.3 kg

DRUGS (21)
  1. GLIADEL [Suspect]
     Indication: GLIOBLASTOMA MULTIFORME
     Dosage: 2 WAFERS ONCE
     Route: 048
     Dates: start: 20090914
  2. TEMODAR [Suspect]
     Indication: GLIOBLASTOMA MULTIFORME
     Dosage: 180 MG QD PO
     Route: 048
     Dates: start: 20091013
  3. RADIATION [Concomitant]
  4. PRANDIN [Concomitant]
  5. CEREFOLIN [Concomitant]
  6. DECADRON [Concomitant]
  7. JANUVIA [Concomitant]
  8. LANTUS [Concomitant]
  9. LEXAPRO [Concomitant]
  10. LORTAB [Concomitant]
  11. LYRICA [Concomitant]
  12. NEXIUM [Concomitant]
  13. NIASPAN [Concomitant]
  14. LIPIT [Concomitant]
  15. STARLIX [Concomitant]
  16. BACTRIM [Concomitant]
  17. TRICOR [Concomitant]
  18. ZOFRAN [Concomitant]
  19. MULTI-VITAMIN [Concomitant]
  20. GLUCOSAMINE [Concomitant]
  21. SENOKOT [Concomitant]

REACTIONS (1)
  - DEEP VEIN THROMBOSIS [None]
